FAERS Safety Report 7134372-4 (Version None)
Quarter: 2010Q4

REPORT INFORMATION
  Report Type: 
  Country: None (occurrence: None)
  Receive Date: 20101117
  Receipt Date: 20101109
  Transmission Date: 20110411
  Serious: Yes (Hospitalization)
  Sender: FDA-Public Use
  Company Number: 2010EU005580

PATIENT
  Age: 13 Year
  Sex: Female

DRUGS (6)
  1. PROGRAF [Suspect]
     Indication: PROPHYLAXIS AGAINST TRANSPLANT REJECTION
     Dosage: 4 MG, /D, ORAL
     Route: 048
     Dates: start: 20081209, end: 20101012
  2. DELTA-CORTEF [Concomitant]
  3. ZANTAC [Concomitant]
  4. FERRO-GRAD (FERROUS SULFATE) [Concomitant]
  5. CARVEDILOL [Concomitant]
  6. METOCAL (CALCIUM CARBONATE) [Concomitant]

REACTIONS (5)
  - HEADACHE [None]
  - PARAESTHESIA [None]
  - PARTIAL SEIZURES [None]
  - RENAL DISORDER [None]
  - REVERSIBLE POSTERIOR LEUKOENCEPHALOPATHY SYNDROME [None]
